FAERS Safety Report 6968192-8 (Version None)
Quarter: 2010Q3

REPORT INFORMATION
  Report Type: 
  Country: None (occurrence: None)
  Receive Date: 20100907
  Receipt Date: 20100825
  Transmission Date: 20110219
  Serious: Yes (Other)
  Sender: FDA-Public Use
  Company Number: FI-ROCHE-668122

PATIENT
  Sex: Female
  Weight: 2.2 kg

DRUGS (3)
  1. TAMIFLU [Suspect]
     Indication: H1N1 INFLUENZA
     Dosage: FREQUENCY: 1X2
     Route: 064
     Dates: start: 20091027, end: 20091031
  2. PANADOL [Concomitant]
     Dates: start: 20091027, end: 20091028
  3. SERETIDE DISKUS [Concomitant]
     Indication: ASTHMA

REACTIONS (2)
  - HAEMANGIOMA [None]
  - NORMAL NEWBORN [None]
